FAERS Safety Report 4685616-X (Version None)
Quarter: 2005Q2

REPORT INFORMATION
  Report Type: 
  Country: None (occurrence: None)
  Receive Date: 20050608
  Receipt Date: 20050527
  Transmission Date: 20051028
  Serious: Yes (Hospitalization)
  Sender: FDA-Public Use
  Company Number: RENA-11392

PATIENT
  Age: 53 Year
  Sex: Female
  Weight: 52.5 kg

DRUGS (14)
  1. RENAGEL [Suspect]
     Indication: HYPERPHOSPHATAEMIA
     Dosage: 2.75 G TID PO
     Route: 048
     Dates: start: 20050325, end: 20050513
  2. RENGAL -250 MG TABLET [Suspect]
     Indication: HYPERPHOSPHATAEMIA
     Dosage: 2.5 G TID PO
     Route: 048
     Dates: start: 20041203, end: 20050324
  3. RENGAL -250 MG TABLET [Suspect]
     Indication: HYPERPHOSPHATAEMIA
     Dosage: 2.25 G TID PO
     Route: 048
     Dates: start: 20041105, end: 20041202
  4. RENGAL -250 MG TABLET [Suspect]
     Indication: HYPERPHOSPHATAEMIA
     Dosage: 2 G TID PO
     Route: 048
     Dates: start: 20040910, end: 42001110
  5. RENGAL -250 MG TABLET [Suspect]
     Indication: HYPERPHOSPHATAEMIA
     Dosage: 1.75 G TID PO
     Route: 048
     Dates: start: 20040813, end: 20040909
  6. RENAGEL [Suspect]
     Indication: HYPERPHOSPHATAEMIA
     Dosage: 1.5 G TID PO
     Route: 048
     Dates: start: 20040716, end: 20040812
  7. RENGAL -250 MG TABLET [Suspect]
     Indication: HYPERPHOSPHATAEMIA
     Dosage: 1.25 G TID PO
     Route: 048
     Dates: start: 20040702, end: 20040715
  8. RENGAL -250 MG TABLET [Suspect]
     Indication: HYPERPHOSPHATAEMIA
     Dosage: 1 G TID PO
     Route: 048
     Dates: start: 20040604, end: 20040701
  9. RENGAL -250 MG TABLET [Suspect]
     Indication: HYPERPHOSPHATAEMIA
     Dosage: 1.75 G TID PO
     Route: 048
     Dates: start: 20040517, end: 20040603
  10. ALFAROL [Concomitant]
  11. MEVALOTIN [Concomitant]
  12. DEPAS [Concomitant]
  13. PURSENNID [Concomitant]
  14. TAMIFLU [Concomitant]

REACTIONS (7)
  - BLOOD PHOSPHORUS INCREASED [None]
  - DIARRHOEA [None]
  - INFLUENZA [None]
  - PAINFUL DEFAECATION [None]
  - PROCTALGIA [None]
  - RENAL CYST INFECTION [None]
  - SUBILEUS [None]
